FAERS Safety Report 8463533-7 (Version None)
Quarter: 2012Q2

REPORT INFORMATION
  Report Type: 
  Country: None (occurrence: None)
  Receive Date: 20120625
  Receipt Date: 20120614
  Transmission Date: 20120825
  Serious: Yes (Hospitalization)
  Sender: FDA-Public Use
  Company Number: FR-BAXTER-2012BAX009328

PATIENT
  Sex: Male

DRUGS (3)
  1. GEMZAR [Suspect]
     Indication: HODGKIN'S DISEASE
     Route: 042
     Dates: start: 20120430
  2. IFOSFAMIDE [Suspect]
     Indication: HODGKIN'S DISEASE
     Route: 042
  3. NAVELBINE [Suspect]
     Indication: HODGKIN'S DISEASE
     Route: 042
     Dates: start: 20120430

REACTIONS (5)
  - TACHYCARDIA [None]
  - FACE OEDEMA [None]
  - CHILLS [None]
  - PYREXIA [None]
  - EYELID OEDEMA [None]
